FAERS Safety Report 5043203-8 (Version None)
Quarter: 2006Q2

REPORT INFORMATION
  Report Type: 
  Country: None (occurrence: None)
  Receive Date: 20060628
  Receipt Date: 20060612
  Transmission Date: 20061013
  Serious: Yes (Other)
  Sender: FDA-Public Use
  Company Number: 2006001236

PATIENT
  Age: 78 Year
  Sex: Male
  Weight: 95.7 kg

DRUGS (6)
  1. TARCEVA [Suspect]
     Indication: NON-SMALL CELL LUNG CANCER
     Dosage: 150 MG (QD), ORAL
     Route: 048
     Dates: start: 20060501, end: 20060516
  2. OXYCODONE HCL [Concomitant]
  3. RANITIDINE [Concomitant]
  4. PROCHLORPERAZINE [Concomitant]
  5. MULTIVITAMIN [Concomitant]
  6. SENNOSIDES (SENNOSIDE A+B) [Concomitant]

REACTIONS (1)
  - URTICARIA [None]
